FAERS Safety Report 10041273 (Version 1)
Quarter: 2014Q1

REPORT INFORMATION
  Report Type: Spontaneous
  Country: BR (occurrence: BR)
  Receive Date: 20140327
  Receipt Date: 20140327
  Transmission Date: 20141002
  Serious: Yes (Other)
  Sender: FDA-Public Use
  Company Number: BR-PFIZER INC-2014085585

PATIENT
  Age: 59 Year
  Sex: Male

DRUGS (2)
  1. LYRICA [Suspect]
     Dosage: 75 MG, TWICE DAILY
     Route: 048
     Dates: start: 2008
  2. AMITRIL [Concomitant]
     Dosage: UNK

REACTIONS (1)
  - Arthropathy [Unknown]
